FAERS Safety Report 10252574 (Version 1)
Quarter: 2014Q2

REPORT INFORMATION
  Report Type: Spontaneous
  Country: US (occurrence: None)
  Receive Date: 20140620
  Receipt Date: 20140620
  Transmission Date: 20141212
  Serious: Yes (Other)
  Sender: FDA-Public Use
  Company Number: None

PATIENT
  Sex: 0

DRUGS (2)
  1. PHENOBARBITAL [Suspect]
     Indication: EPILEPSY
     Route: 048
     Dates: start: 20140302, end: 20140422
  2. PHENOBARBITAL [Suspect]
     Indication: CONVULSION
     Route: 048
     Dates: start: 20140302, end: 20140422

REACTIONS (4)
  - Convulsion [None]
  - Anticonvulsant drug level below therapeutic [None]
  - Product substitution issue [None]
  - Product quality issue [None]
